FAERS Safety Report 5280442-5 (Version None)
Quarter: 2007Q1

REPORT INFORMATION
  Report Type: 
  Country: None (occurrence: None)
  Receive Date: 20070329
  Receipt Date: 20070321
  Transmission Date: 20070707
  Serious: Yes (Hospitalization)
  Sender: FDA-Public Use
  Company Number: FR-AVENTIS-200710659FR

PATIENT
  Age: 54 Year
  Sex: Male

DRUGS (6)
  1. LASILIX                            /00032601/ [Suspect]
     Indication: DRUG USE FOR UNKNOWN INDICATION
     Route: 048
     Dates: start: 20070117, end: 20070117
  2. OPTIJECT [Suspect]
     Indication: DRUG USE FOR UNKNOWN INDICATION
     Route: 042
     Dates: start: 20070117, end: 20070117
  3. HUMEX                              /00878501/ [Concomitant]
     Route: 048
     Dates: start: 20070107, end: 20070109
  4. ENZYME PREPARATIONS [Concomitant]
     Route: 048
     Dates: start: 20070107, end: 20070109
  5. FERVEX [Concomitant]
     Route: 048
     Dates: start: 20070107, end: 20070109
  6. NUROFEN [Concomitant]
     Route: 048
     Dates: start: 20070121, end: 20070121

REACTIONS (6)
  - ACUTE GENERALISED EXANTHEMATOUS PUSTULOSIS [None]
  - EOSINOPHILIA [None]
  - LEUKOCYTOSIS [None]
  - PRURIGO [None]
  - PYREXIA [None]
  - RASH PUSTULAR [None]
